FAERS Safety Report 19089694 (Version 1)
Quarter: 2021Q2

REPORT INFORMATION
  Report Type: Spontaneous
  Country: GB (occurrence: GB)
  Receive Date: 20210403
  Receipt Date: 20210403
  Transmission Date: 20210717
  Serious: Yes (Hospitalization)
  Sender: FDA-Public Use
  Company Number: GB-TEVA-2021-GB-1895401

PATIENT
  Age: 80 Year
  Sex: Male
  Weight: 61 kg

DRUGS (6)
  1. ATORVASTATIN CALCIUM. [Concomitant]
     Active Substance: ATORVASTATIN CALCIUM
     Indication: ILL-DEFINED DISORDER
  2. OMEPRAZOLE SODIUM [Concomitant]
     Active Substance: OMEPRAZOLE SODIUM
     Indication: ILL-DEFINED DISORDER
  3. SODIUM BICARBONATE POWDER [Concomitant]
     Indication: ILL-DEFINED DISORDER
  4. TRIMETHOPRIM. [Suspect]
     Active Substance: TRIMETHOPRIM
     Indication: ESCHERICHIA URINARY TRACT INFECTION
     Dosage: 200MG
     Route: 048
     Dates: start: 20210315, end: 20210319
  5. RAMIPRIL. [Concomitant]
     Active Substance: RAMIPRIL
     Indication: ILL-DEFINED DISORDER
  6. LOPERAMIDE [Concomitant]
     Active Substance: LOPERAMIDE
     Indication: ILL-DEFINED DISORDER

REACTIONS (1)
  - Acute kidney injury [Not Recovered/Not Resolved]

NARRATIVE: CASE EVENT DATE: 20210319
